FAERS Safety Report 4975062-3 (Version None)
Quarter: 2006Q2

REPORT INFORMATION
  Report Type: 
  Country: None (occurrence: None)
  Receive Date: 20060414
  Receipt Date: 20060414
  Transmission Date: 20061013
  Serious: Yes (Other)
  Sender: FDA-Public Use
  Company Number: None

PATIENT
  Age: 4 Year
  Sex: Female
  Weight: 20.4119 kg

DRUGS (1)
  1. VIGAMOX [Suspect]
     Indication: CONJUNCTIVITIS BACTERIAL
     Dosage: 1 DROP TID OTIC
     Dates: start: 20060410, end: 20060412

REACTIONS (1)
  - CONJUNCTIVAL HAEMORRHAGE [None]
